FAERS Safety Report 9230819 (Version 1)
Quarter: 2013Q2

REPORT INFORMATION
  Report Type: Spontaneous
  Country: FR (occurrence: FR)
  Receive Date: 20130415
  Receipt Date: 20130415
  Transmission Date: 20140414
  Serious: Yes (Hospitalization)
  Sender: FDA-Public Use
  Company Number: FR-ROCHE-1212227

PATIENT
  Age: 52 Year
  Sex: Male

DRUGS (10)
  1. CELLCEPT [Suspect]
     Indication: LIVER TRANSPLANT
     Route: 048
     Dates: start: 20120417, end: 20120618
  2. INEXIUM [Suspect]
     Indication: LIVER TRANSPLANT
     Route: 048
     Dates: end: 20120618
  3. URSOLVAN [Suspect]
     Indication: LIVER TRANSPLANT
     Route: 048
     Dates: end: 20120618
  4. TAZOCILLINE [Suspect]
     Indication: PROPHYLAXIS
     Route: 051
     Dates: end: 201206
  5. NEORAL [Concomitant]
     Route: 065
     Dates: start: 20120417
  6. AMLOR [Concomitant]
     Dosage: FOR 24 DAYS
     Route: 065
  7. LASILIX [Concomitant]
     Route: 065
  8. GRANOCYTE [Concomitant]
     Route: 065
     Dates: start: 20120618
  9. TAVANIC [Concomitant]
  10. PENTACARINAT [Concomitant]

REACTIONS (2)
  - Neutropenia [Recovered/Resolved]
  - Agranulocytosis [Recovered/Resolved]
